FAERS Safety Report 23103658 (Version 1)
Quarter: 2023Q4

REPORT INFORMATION
  Report Type: Spontaneous
  Country: BR (occurrence: BR)
  Receive Date: 20231025
  Receipt Date: 20231025
  Transmission Date: 20240110
  Serious: Yes (Hospitalization, Other)
  Sender: FDA-Public Use
  Company Number: BR-TAKEDA-2023TUS095426

PATIENT
  Age: 34 Year
  Sex: Male
  Weight: 75 kg

DRUGS (2)
  1. PANTOPRAZOLE [Suspect]
     Active Substance: PANTOPRAZOLE
     Indication: Hyperchlorhydria
     Dosage: UNK
     Route: 065
  2. DEXILANT [Suspect]
     Active Substance: DEXLANSOPRAZOLE
     Indication: Gastrooesophageal reflux disease
     Dosage: 60 MILLIGRAM, QD
     Route: 048
     Dates: start: 201807

REACTIONS (11)
  - Oesophageal disorder [Not Recovered/Not Resolved]
  - Erosive oesophagitis [Not Recovered/Not Resolved]
  - Choking [Not Recovered/Not Resolved]
  - Oesophageal achalasia [Not Recovered/Not Resolved]
  - Gastrooesophageal reflux disease [Unknown]
  - Nausea [Not Recovered/Not Resolved]
  - Gastrointestinal hypomotility [Not Recovered/Not Resolved]
  - Condition aggravated [Not Recovered/Not Resolved]
  - Dyspepsia [Not Recovered/Not Resolved]
  - Dysphagia [Recovered/Resolved]
  - Cough [Not Recovered/Not Resolved]
